FAERS Safety Report 23325807 (Version 1)
Quarter: 2023Q4

REPORT INFORMATION
  Report Type: Spontaneous
  Country: ES (occurrence: ES)
  Receive Date: 20231221
  Receipt Date: 20231221
  Transmission Date: 20240110
  Serious: Yes (Hospitalization, Other)
  Sender: FDA-Public Use
  Company Number: ES-CELLTRION INC.-2023ES023352

PATIENT

DRUGS (18)
  1. BEVACIZUMAB [Suspect]
     Active Substance: BEVACIZUMAB
     Indication: Rectal adenocarcinoma
     Dosage: 9 CYCLES + 3 CYCLES
     Route: 065
  2. CAPECITABINE [Suspect]
     Active Substance: CAPECITABINE
     Indication: Rectal adenocarcinoma
     Route: 065
  3. FLUOROURACIL [Suspect]
     Active Substance: FLUOROURACIL
     Indication: Rectal adenocarcinoma
     Route: 065
  4. LEUCOVORIN [Suspect]
     Active Substance: LEUCOVORIN\LEUCOVORIN CALCIUM
     Indication: Rectal adenocarcinoma
     Route: 065
  5. OXALIPLATIN [Suspect]
     Active Substance: OXALIPLATIN
     Indication: Rectal adenocarcinoma
     Route: 065
  6. COTRIMOXAZOLE [Concomitant]
     Active Substance: SULFAMETHOXAZOLE\TRIMETHOPRIM
     Dosage: 800/120 MG/12 H
  7. VORICONAZOLE [Concomitant]
     Active Substance: VORICONAZOLE
     Dosage: 300 MG 12 HOUR
  8. CETUXIMAB [Concomitant]
     Active Substance: CETUXIMAB
     Indication: Rectal adenocarcinoma
     Dosage: 4 CYCLES
     Route: 065
  9. AMOXICILLIN\CLAVULANIC ACID [Concomitant]
     Active Substance: AMOXICILLIN\CLAVULANIC ACID
  10. IRINOTECAN [Concomitant]
     Active Substance: IRINOTECAN
  11. AZITHROMYCIN [Concomitant]
     Active Substance: AZITHROMYCIN
  12. FLUOROURACIL [Concomitant]
     Active Substance: FLUOROURACIL
  13. LEUCOVORIN [Concomitant]
     Active Substance: LEUCOVORIN\LEUCOVORIN CALCIUM
  14. LEVOFLOXACIN [Concomitant]
     Active Substance: LEVOFLOXACIN
     Dosage: 500 MG, EVERY 24 HOURS
  15. PIPERACILLIN AND TAZOBACTAM [Concomitant]
     Active Substance: PIPERACILLIN SODIUM\TAZOBACTAM SODIUM
     Dosage: 4 G, EVERY 6 HOURS
  16. FLUOROURACIL\LEUCOVORIN CALCIUM\OXALIPLATIN [Concomitant]
     Active Substance: FLUOROURACIL\LEUCOVORIN CALCIUM\OXALIPLATIN
     Indication: Rectal adenocarcinoma
     Dosage: 9 CYCLES
  17. CAPECITABINE [Concomitant]
     Active Substance: CAPECITABINE
     Dosage: 3 CYCLES
  18. FLUOROURACIL\IRINOTECAN\LEUCOVORIN [Suspect]
     Active Substance: FLUOROURACIL\IRINOTECAN\LEUCOVORIN
     Indication: Rectal adenocarcinoma
     Dosage: 4 CYCLES

REACTIONS (6)
  - Rectal adenocarcinoma [Unknown]
  - Disease progression [Unknown]
  - Pulmonary nocardiosis [Unknown]
  - Scedosporium infection [Recovering/Resolving]
  - Skin infection [Recovering/Resolving]
  - Pneumonia [Recovering/Resolving]
